FAERS Safety Report 5420308-0 (Version None)
Quarter: 2007Q3

REPORT INFORMATION
  Report Type: 
  Country: None (occurrence: None)
  Receive Date: 20070815
  Receipt Date: 20070801
  Transmission Date: 20080115
  Serious: Yes (Hospitalization)
  Sender: FDA-Public Use
  Company Number: AU-1163780

PATIENT

DRUGS (1)
  1. TOBREX [Suspect]
     Dosage: EYE DROPS, SOLUTION; OPHTHALMIC
     Route: 047

REACTIONS (1)
  - DYSPNOEA [None]
